FAERS Safety Report 7019066-8 (Version None)
Quarter: 2010Q3

REPORT INFORMATION
  Report Type: 
  Country: None (occurrence: None)
  Receive Date: 20100928
  Receipt Date: 20100924
  Transmission Date: 20110219
  Serious: Yes (Death)
  Sender: FDA-Public Use
  Company Number: A0882211A

PATIENT
  Sex: Female

DRUGS (12)
  1. PROMACTA [Suspect]
     Indication: THROMBOCYTOPENIA
     Dosage: 50MG PER DAY
     Route: 048
     Dates: end: 20100601
  2. PREDNISONE TAPER [Concomitant]
  3. CALCIUM + VITAMIN D [Concomitant]
     Dosage: 1TAB PER DAY
  4. COENZYME Q10 [Concomitant]
     Dosage: 100MG PER DAY
  5. CRESTOR [Concomitant]
  6. DEXAMETHASONE [Concomitant]
  7. POTASSIUM CHLORIDE [Concomitant]
     Dosage: 20MEQ PER DAY
  8. NITROGLYCERIN [Concomitant]
     Dosage: .4MG AS REQUIRED
  9. DOXYCYCLINE [Concomitant]
     Dosage: .25TAB TWICE PER DAY
  10. LISINOPRIL [Concomitant]
     Dosage: 20MG TWICE PER DAY
  11. METOPROLOL TARTRATE [Concomitant]
  12. OMEPRAZOLE [Concomitant]
     Dosage: 20MG TWICE PER DAY

REACTIONS (5)
  - DISSEMINATED INTRAVASCULAR COAGULATION [None]
  - DRUG INEFFECTIVE [None]
  - HAEMORRHAGIC DISORDER [None]
  - IDIOPATHIC THROMBOCYTOPENIC PURPURA [None]
  - TUBERCULOSIS [None]
